FAERS Safety Report 8678556 (Version 2)
Quarter: 2012Q4

REPORT INFORMATION
  Report Type: 
  Country: AU (occurrence: AU)
  Receive Date: 20120723
  Receipt Date: 20120914
  Transmission Date: 20130627
  Serious: Yes (Hospitalization)
  Sender: FDA-Public Use
  Company Number: AU-PFIZER INC-2012175279

PATIENT
  Age: 95 Year
  Sex: Female

DRUGS (3)
  1. CELEBREX [Suspect]
     Dosage: UNK
  2. AVAPRO [Suspect]
  3. LASIX [Concomitant]

REACTIONS (3)
  - Renal failure acute [Unknown]
  - Delirium [Unknown]
  - Cardiac failure congestive [Unknown]
